FAERS Safety Report 5474154-2 (Version None)
Quarter: 2007Q3

REPORT INFORMATION
  Report Type: 
  Country: None (occurrence: None)
  Receive Date: 20070830
  Receipt Date: 20070508
  Transmission Date: 20080115
  Serious: Yes (Other)
  Sender: FDA-Public Use
  Company Number: 234645

PATIENT
  Age: 55 Year
  Sex: Male

DRUGS (9)
  1. XOLAIR [Suspect]
     Indication: ASTHMA
     Dosage: 450 MG, Q2W, SUBCUTANEOUS
     Route: 058
     Dates: start: 20060201
  2. QVAR 40 [Concomitant]
  3. FORADIL [Concomitant]
  4. FLONASE [Concomitant]
  5. ACCOLATE [Concomitant]
  6. ASTELIN [Concomitant]
  7. GLUCOPHAGE [Concomitant]
  8. LIPITOR [Concomitant]
  9. VENTOLIN (ALBUTEOL/ ALBUTEROL SULFATE) [Concomitant]

REACTIONS (1)
  - PROSTATE CANCER [None]
